FAERS Safety Report 7280314-0 (Version None)
Quarter: 2011Q1

REPORT INFORMATION
  Report Type: 
  Country: None (occurrence: None)
  Receive Date: 20110208
  Receipt Date: 20110127
  Transmission Date: 20110831
  Serious: Yes (Hospitalization)
  Sender: FDA-Public Use
  Company Number: DE-SANOFI-AVENTIS-2010SA073993

PATIENT
  Age: 52 Year
  Sex: Male
  Weight: 82 kg

DRUGS (5)
  1. LEVOTHYROXINE SODIUM [Concomitant]
     Dosage: 1-0-0
     Route: 048
  2. RAMIPRIL [Suspect]
     Dosage: 1-0-1
     Route: 048
     Dates: start: 20100713, end: 20100820
  3. ACETYLSALICYLIC ACID [Concomitant]
     Dosage: 1-0-0
     Route: 048
     Dates: start: 20100713
  4. SIMVASTATIN [Concomitant]
     Dosage: 0-0-1
     Route: 048
     Dates: start: 20100713
  5. CLOPIDOGREL BISULFATE [Suspect]
     Dosage: 1-0-0
     Route: 048
     Dates: start: 20100713

REACTIONS (3)
  - ANOSMIA [None]
  - DYSGEUSIA [None]
  - PAROSMIA [None]
